FAERS Safety Report 11276491 (Version 1)
Quarter: 2015Q3

REPORT INFORMATION
  Report Type: Spontaneous
  Country: US (occurrence: US)
  Receive Date: 20150716
  Receipt Date: 20150716
  Transmission Date: 20151125
  Serious: Yes (Disabling, Other)
  Sender: FDA-Public Use
  Company Number: US-SANOFI-AVENTIS-2012SA064103

PATIENT
  Age: 68 Year
  Sex: Male

DRUGS (3)
  1. PLAVIX [Suspect]
     Active Substance: CLOPIDOGREL BISULFATE
     Indication: AORTIC ANEURYSM
     Route: 065
     Dates: start: 200309, end: 200603
  2. BABY ASPIRIN [Concomitant]
     Active Substance: ASPIRIN
  3. BABY ASPIRIN [Concomitant]
     Active Substance: ASPIRIN
     Dates: start: 2003, end: 2006

REACTIONS (5)
  - Motor dysfunction [Unknown]
  - Amnesia [Unknown]
  - Mental impairment [Unknown]
  - Cerebrovascular accident [Unknown]
  - Cerebral haemorrhage [Unknown]

NARRATIVE: CASE EVENT DATE: 200603
